FAERS Safety Report 12447794 (Version 3)
Quarter: 2018Q2

REPORT INFORMATION
  Report Type: Spontaneous
  Country: US (occurrence: US)
  Receive Date: 20160608
  Receipt Date: 20180515
  Transmission Date: 20180711
  Serious: No
  Sender: FDA-Public Use
  Company Number: US-SA-2016SA095733

PATIENT
  Age: 65 Year
  Sex: Female
  Weight: 98.8 kg

DRUGS (11)
  1. TOUJEO [Suspect]
     Active Substance: INSULIN GLARGINE
     Indication: TYPE 1 DIABETES MELLITUS
     Dosage: DOSE:20 UNIT(S)
     Route: 065
     Dates: start: 20160407, end: 20160428
  2. ASPIRIN. [Concomitant]
     Active Substance: ASPIRIN
  3. CYCLOBENZAPRINE. [Concomitant]
     Active Substance: CYCLOBENZAPRINE
  4. METFORMIN [Concomitant]
     Active Substance: METFORMIN HYDROCHLORIDE
     Dosage: FREQUENCY 5U DAILY
  5. LASIX [Concomitant]
     Active Substance: FUROSEMIDE
  6. CELEBREX [Concomitant]
     Active Substance: CELECOXIB
  7. TRICOR [Concomitant]
     Active Substance: FENOFIBRATE
  8. SOLOSTAR [Concomitant]
     Active Substance: DEVICE
     Indication: DIABETES MELLITUS
     Dates: start: 20160401, end: 20160430
  9. GLIPIZIDE. [Concomitant]
     Active Substance: GLIPIZIDE
  10. BISOPROLOL/HYDROCHLOROTHIAZIDE [Concomitant]
     Dosage: 5 TO 6.25
  11. POTASSIUM [Concomitant]
     Active Substance: POTASSIUM

REACTIONS (4)
  - Oedema [Recovered/Resolved]
  - Lip swelling [Recovered/Resolved]
  - Pain [Recovered/Resolved]
  - Peripheral swelling [Recovered/Resolved]

NARRATIVE: CASE EVENT DATE: 201604
